FAERS Safety Report 14547649 (Version 1)
Quarter: 2018Q1

REPORT INFORMATION
  Report Type: Report from Study
  Country: JP (occurrence: JP)
  Receive Date: 20180219
  Receipt Date: 20180219
  Transmission Date: 20180509
  Serious: Yes (Hospitalization)
  Sender: FDA-Public Use
  Company Number: JP-JNJFOC-20180224077

PATIENT
  Age: 59 Year
  Sex: Male
  Weight: 78 kg

DRUGS (9)
  1. AMARYL [Concomitant]
     Active Substance: GLIMEPIRIDE
     Route: 048
  2. AMLODIPINE [Concomitant]
     Active Substance: AMLODIPINE BESYLATE
     Route: 048
  3. XARELTO [Suspect]
     Active Substance: RIVAROXABAN
     Indication: ATRIAL FIBRILLATION
     Route: 048
     Dates: start: 20121110, end: 20140527
  4. VICTOZA [Concomitant]
     Active Substance: LIRAGLUTIDE
     Route: 048
  5. TENORMIN [Concomitant]
     Active Substance: ATENOLOL
     Route: 048
  6. APIXABAN [Concomitant]
     Active Substance: APIXABAN
     Route: 048
     Dates: start: 20140529
  7. EPADEL [Concomitant]
     Active Substance: ICOSAPENT
     Route: 048
  8. MICARDIS [Concomitant]
     Active Substance: TELMISARTAN
     Route: 048
  9. XARELTO [Suspect]
     Active Substance: RIVAROXABAN
     Indication: CEREBROVASCULAR ACCIDENT PROPHYLAXIS
     Route: 048
     Dates: start: 20121110, end: 20140527

REACTIONS (1)
  - Embolic stroke [Recovering/Resolving]

NARRATIVE: CASE EVENT DATE: 20140528
